FAERS Safety Report 15477595 (Version 1)
Quarter: 2018Q4

REPORT INFORMATION
  Report Type: Spontaneous
  Country: CH (occurrence: CH)
  Receive Date: 20181009
  Receipt Date: 20181009
  Transmission Date: 20190205
  Serious: No
  Sender: FDA-Public Use
  Company Number: CH-ALKEM LABORATORIES LIMITED-CH-ALKEM-2018-06214

PATIENT
  Age: 47 Year
  Sex: Female

DRUGS (4)
  1. GABAPENTIN. [Suspect]
     Active Substance: GABAPENTIN
     Indication: COMPLEX REGIONAL PAIN SYNDROME
     Dosage: UNK
     Route: 065
  2. LIDOCAINE. [Suspect]
     Active Substance: LIDOCAINE
     Indication: COMPLEX REGIONAL PAIN SYNDROME
     Dosage: UNK, INFUSION THERAPY
     Route: 065
  3. KETAMINE [Suspect]
     Active Substance: KETAMINE
     Indication: COMPLEX REGIONAL PAIN SYNDROME
     Dosage: UNK, INFUSION THERAPY
     Route: 065
  4. KETAMINE [Suspect]
     Active Substance: KETAMINE
     Dosage: UNK, SPRAY
     Route: 045

REACTIONS (1)
  - Drug ineffective [Unknown]
